FAERS Safety Report 9476234 (Version 6)
Quarter: 2015Q2

REPORT INFORMATION
  Report Type: Report from Study
  Country: US (occurrence: US)
  Receive Date: 20130826
  Receipt Date: 20150402
  Transmission Date: 20150821
  Serious: Yes (Hospitalization, Other)
  Sender: FDA-Public Use
  Company Number: US-SANOFI-AVENTIS-2013SA083924

PATIENT
  Age: 47 Year
  Sex: Female

DRUGS (2)
  1. AUBAGIO [Suspect]
     Active Substance: TERIFLUNOMIDE
     Indication: MULTIPLE SCLEROSIS
     Route: 048
     Dates: end: 20130815
  2. AUBAGIO [Suspect]
     Active Substance: TERIFLUNOMIDE
     Indication: MULTIPLE SCLEROSIS
     Route: 048
     Dates: start: 20130905

REACTIONS (11)
  - Prosopagnosia [Recovered/Resolved]
  - Fall [Not Recovered/Not Resolved]
  - Cerebrovascular accident [Unknown]
  - Blood potassium decreased [Recovered/Resolved]
  - Memory impairment [Unknown]
  - Fatigue [Unknown]
  - Urinary tract infection [Recovered/Resolved]
  - Hemiparesis [Unknown]
  - Dysgraphia [Unknown]
  - Ventricular tachycardia [Recovered/Resolved]
  - Dehydration [Recovered/Resolved]

NARRATIVE: CASE EVENT DATE: 201308
